FAERS Safety Report 17859465 (Version 1)
Quarter: 2020Q2

REPORT INFORMATION
  Report Type: Spontaneous
  Country: DE (occurrence: DE)
  Receive Date: 20200604
  Receipt Date: 20200604
  Transmission Date: 20200714
  Serious: Yes (Hospitalization)
  Sender: FDA-Public Use
  Company Number: NVSC2020DE147800

PATIENT
  Age: 61 Year
  Sex: Female
  Weight: 79.7 kg

DRUGS (5)
  1. DEXAMETHASONE. [Concomitant]
     Active Substance: DEXAMETHASONE
     Indication: PREMEDICATION
     Dosage: UNK (GABE 4H VOR DER CARBOPLATIN-GABE)
     Route: 042
     Dates: start: 20191128
  2. PACLITAXEL. [Concomitant]
     Active Substance: PACLITAXEL
     Indication: OVARIAN CANCER RECURRENT
     Dosage: UNK 334.2
     Route: 042
     Dates: start: 20191128
  3. DIMETINDENE [Concomitant]
     Active Substance: DIMETHINDENE
     Indication: PREMEDICATION
     Dosage: UNK (GABE 4H VOR DER CARBOPLATIN-GABE)
     Route: 042
     Dates: start: 20191128
  4. GRANISETRON [Concomitant]
     Active Substance: GRANISETRON
     Indication: PREMEDICATION
     Dosage: UNK GABE 4H VOR DER CARBOPLATIN-GABE()
     Route: 042
     Dates: start: 20191128
  5. CARBOPLATIN. [Suspect]
     Active Substance: CARBOPLATIN
     Indication: OVARIAN CANCER RECURRENT
     Dosage: UNK 612.8WIRKSTOFF IN 500ML GLUCOSE 5% VERD?NNT
     Route: 042
     Dates: start: 20191128

REACTIONS (4)
  - Dyspnoea [Recovering/Resolving]
  - Flushing [Recovering/Resolving]
  - Erythema [Recovering/Resolving]
  - Tachycardia [Recovering/Resolving]

NARRATIVE: CASE EVENT DATE: 20191128
